FAERS Safety Report 23541062 (Version 3)
Quarter: 2024Q1

REPORT INFORMATION
  Report Type: Spontaneous
  Country: US (occurrence: US)
  Receive Date: 20240219
  Receipt Date: 20240320
  Transmission Date: 20240409
  Serious: Yes (Hospitalization)
  Sender: FDA-Public Use
  Company Number: US-Stemline Therapeutics, Inc.-2024ST000098

PATIENT
  Age: 54 Year
  Sex: Female

DRUGS (1)
  1. ORSERDU [Suspect]
     Active Substance: ELACESTRANT
     Indication: Product used for unknown indication
     Route: 048
     Dates: start: 20231107

REACTIONS (17)
  - Burning sensation [Unknown]
  - Malaise [Unknown]
  - Presyncope [Unknown]
  - Neuralgia [Unknown]
  - Balance disorder [Unknown]
  - Headache [Unknown]
  - Nausea [Unknown]
  - Dizziness [Unknown]
  - Discomfort [Unknown]
  - Heart rate increased [Unknown]
  - Electric shock sensation [Unknown]
  - Illness [Unknown]
  - Liver function test increased [Unknown]
  - Vomiting [Not Recovered/Not Resolved]
  - Disturbance in attention [Unknown]
  - Toxicity to various agents [Unknown]
  - Discontinued product administered [Unknown]
